FAERS Safety Report 6150047-2 (Version None)
Quarter: 2009Q2

REPORT INFORMATION
  Report Type: 
  Country: None (occurrence: None)
  Receive Date: 20090407
  Receipt Date: 20090327
  Transmission Date: 20091009
  Serious: Yes (Hospitalization, Other)
  Sender: FDA-Public Use
  Company Number: 1000005099

PATIENT
  Age: 18 Year
  Sex: Female

DRUGS (2)
  1. ESCITALOPRAM OXALATE [Suspect]
     Dosage: 80 MG (80 MG, ONCE), ORAL; ORAL
     Route: 048
     Dates: start: 20090302, end: 20090302
  2. RITALIN [Suspect]
     Dosage: 300 MG (300 MG, ONCE), ORAL
     Route: 048
     Dates: start: 20090302, end: 20090302

REACTIONS (5)
  - AGITATION [None]
  - BLOOD CREATINE PHOSPHOKINASE [None]
  - INTENTIONAL OVERDOSE [None]
  - INTENTIONAL SELF-INJURY [None]
  - SUICIDE ATTEMPT [None]
